FAERS Safety Report 4906901-X (Version None)
Quarter: 2006Q1

REPORT INFORMATION
  Report Type: 
  Country: None (occurrence: None)
  Receive Date: 20060207
  Receipt Date: 20060126
  Transmission Date: 20060701
  Serious: Yes (Hospitalization, Other)
  Sender: FDA-Public Use
  Company Number: 2006AL000252

PATIENT
  Age: 78 Year
  Sex: Female

DRUGS (7)
  1. TEMAZEPAM [Suspect]
     Dosage: 5 MG; PO
     Route: 048
  2. CHLORPROMAZINE [Concomitant]
  3. TOLTERODINE [Concomitant]
  4. TRIMIPRAMINE MALEATE [Concomitant]
  5. CLOPIDOGREL [Concomitant]
  6. SALBUTAMOL [Concomitant]
  7. IPRATROPIUM BROMIDE [Concomitant]

REACTIONS (16)
  - ADJUSTMENT DISORDER [None]
  - ANAEMIA [None]
  - ANGIOPATHY [None]
  - BLOOD CREATININE INCREASED [None]
  - C-REACTIVE PROTEIN INCREASED [None]
  - CHRONIC OBSTRUCTIVE PULMONARY DISEASE [None]
  - CONFUSIONAL STATE [None]
  - DIARRHOEA [None]
  - DYSPHASIA [None]
  - FALL [None]
  - HAEMOGLOBIN DECREASED [None]
  - HYPONATRAEMIA [None]
  - HYPOVOLAEMIA [None]
  - PROTEUS INFECTION [None]
  - URGE INCONTINENCE [None]
  - URINARY INCONTINENCE [None]
